FAERS Safety Report 10420961 (Version 1)
Quarter: 2014Q3

REPORT INFORMATION
  Report Type: Spontaneous
  Country: US (occurrence: None)
  Receive Date: 20140714
  Receipt Date: 20140714
  Transmission Date: 20150326
  Serious: Yes (Hospitalization)
  Sender: FDA-Public Use
  Company Number: 2014US003131

PATIENT
  Age: 51 Year
  Sex: Male

DRUGS (6)
  1. ICLUSIG [Suspect]
     Active Substance: PONATINIB
     Indication: CHRONIC MYELOID LEUKAEMIA
     Route: 048
     Dates: start: 20140318, end: 20140323
  2. PHENERGAN (PROMETHAZINE HYDROCHLORIDE) SUPPOSITORY [Concomitant]
  3. AMLODIPINE (AMLODIPINE BESILATE) [Concomitant]
  4. HYDROXYUREA. [Concomitant]
     Active Substance: HYDROXYUREA
  5. PANCRELIPASE [Concomitant]
     Active Substance: PANCRELIPASE
  6. CARVEDILOL. [Concomitant]
     Active Substance: CARVEDILOL

REACTIONS (4)
  - Pain in jaw [None]
  - Dysstasia [None]
  - Local swelling [None]
  - Pain in extremity [None]

NARRATIVE: CASE EVENT DATE: 20140322
